FAERS Safety Report 16944139 (Version 2)
Quarter: 2019Q4

REPORT INFORMATION
  Report Type: Spontaneous
  Country: NL (occurrence: GB)
  Receive Date: 20191022
  Receipt Date: 20191024
  Transmission Date: 20200122
  Serious: Yes (Other)
  Sender: FDA-Public Use
  Company Number: NL-ACCORD-158521

PATIENT
  Sex: Male
  Weight: 68 kg

DRUGS (1)
  1. ATORVASTATIN/ATORVASTATIN CALCIUM [Suspect]
     Active Substance: ATORVASTATIN CALCIUM
     Indication: BLOOD CHOLESTEROL
     Dosage: ONCE A DAY, STRENGTH: 40 MG, 1 TIME PER DAY
     Dates: start: 20190618, end: 20190906

REACTIONS (2)
  - Multiple sclerosis [Recovering/Resolving]
  - Dysphagia [Recovering/Resolving]
